FAERS Safety Report 4726253-8 (Version None)
Quarter: 2005Q3

REPORT INFORMATION
  Report Type: 
  Country: None (occurrence: None)
  Receive Date: 20050727
  Receipt Date: 19981204
  Transmission Date: 20060218
  Serious: Yes (Life-Threatening)
  Sender: FDA-Public Use
  Company Number: E/98/00110/SYT

PATIENT
  Age: 29 Year
  Sex: Female

DRUGS (4)
  1. SYNTOCINON [Suspect]
     Indication: SURGERY
     Route: 042
     Dates: start: 19980601, end: 19980601
  2. METHERGINE [Suspect]
     Indication: SURGERY
     Route: 065
  3. CEFTRIAXONE [Suspect]
     Route: 065
     Dates: start: 19980601
  4. DINOPROSTONE (DINOPROSTONE) [Suspect]
     Route: 065
     Dates: start: 19980601

REACTIONS (1)
  - DISSEMINATED INTRAVASCULAR COAGULATION [None]
